FAERS Safety Report 9542264 (Version 3)
Quarter: 2013Q4

REPORT INFORMATION
  Report Type: Spontaneous
  Country: US (occurrence: US)
  Receive Date: 20130923
  Receipt Date: 20131025
  Transmission Date: 20140711
  Serious: Yes (Death, Other)
  Sender: FDA-Public Use
  Company Number: US-PFIZER INC-2013269784

PATIENT
  Age: 57 Year
  Sex: Male

DRUGS (1)
  1. INLYTA [Suspect]
     Indication: RENAL CANCER METASTATIC
     Dosage: 1 MG, 2X/DAY
     Route: 048
     Dates: start: 20130811

REACTIONS (3)
  - Disease progression [Fatal]
  - Renal cancer metastatic [Fatal]
  - Tumour pain [Unknown]
